FAERS Safety Report 4835953-0 (Version None)
Quarter: 2005Q4

REPORT INFORMATION
  Report Type: 
  Country: None (occurrence: None)
  Receive Date: 20051123
  Receipt Date: 20051006
  Transmission Date: 20060501
  Serious: Yes (Death, Other)
  Sender: FDA-Public Use
  Company Number: US-AMGEN-US153290

PATIENT
  Sex: Male

DRUGS (1)
  1. ENBREL [Suspect]
     Indication: PSORIATIC ARTHROPATHY
     Dates: start: 20001101, end: 20040712

REACTIONS (3)
  - MALIGNANT MELANOMA [None]
  - METASTASES TO BLADDER [None]
  - METASTASES TO MENINGES [None]
